FAERS Safety Report 6213782-3 (Version None)
Quarter: 2009Q2

REPORT INFORMATION
  Report Type: 
  Country: None (occurrence: None)
  Receive Date: 20090602
  Receipt Date: 20090519
  Transmission Date: 20091009
  Serious: Yes (Other)
  Sender: FDA-Public Use
  Company Number: US-1169624

PATIENT
  Age: 33 Year
  Sex: Female

DRUGS (6)
  1. VIGAMOX [Suspect]
     Indication: ANTIBIOTIC THERAPY
     Dosage: (OPHTHALMIC)
     Route: 047
     Dates: start: 20090513
  2. OMNIPRED [Suspect]
     Indication: EYE INFLAMMATION
     Dosage: (OPHTHALMIC)
     Route: 047
     Dates: start: 20090513
  3. AZOPT [Suspect]
     Indication: GLAUCOMA
     Dosage: (OPHTHALMIC)
     Route: 047
     Dates: start: 20090513
  4. COSOPT [Concomitant]
  5. PILOCARPINE HCL [Concomitant]
  6. ALPHAGAN [Concomitant]

REACTIONS (1)
  - EPISTAXIS [None]
